FAERS Safety Report 5164491-3 (Version None)
Quarter: 2006Q4

REPORT INFORMATION
  Report Type: 
  Country: None (occurrence: None)
  Receive Date: 20061205
  Receipt Date: 20061122
  Transmission Date: 20070319
  Serious: Yes (Hospitalization)
  Sender: FDA-Public Use
  Company Number: PHRM2006FR03135

PATIENT
  Age: 81 Year
  Sex: Male

DRUGS (7)
  1. NITRODERM [Suspect]
     Dosage: 5 MG, QD
     Route: 062
  2. LASIX [Suspect]
     Dosage: 2 DF/DAY
     Route: 048
  3. ATHYMIL [Suspect]
     Dosage: 100 MG/DAY
     Route: 048
     Dates: end: 20060925
  4. INSULATARD NPH HUMAN [Suspect]
     Dosage: 12 UI/DAY
     Route: 058
  5. NEXIUM [Suspect]
     Dosage: 1 DF, QD
     Route: 048
  6. CORDARONE [Suspect]
     Dosage: 200 MG, QD
     Route: 048
  7. DIFFU K [Concomitant]
     Dosage: 3 DF/DAY

REACTIONS (8)
  - ALANINE AMINOTRANSFERASE INCREASED [None]
  - ANOREXIA [None]
  - ASPARTATE AMINOTRANSFERASE INCREASED [None]
  - BLOOD ALKALINE PHOSPHATASE INCREASED [None]
  - CHOLESTASIS [None]
  - CYTOLYTIC HEPATITIS [None]
  - GAMMA-GLUTAMYLTRANSFERASE INCREASED [None]
  - JAUNDICE [None]
